FAERS Safety Report 11372062 (Version 2)
Quarter: 2015Q4

REPORT INFORMATION
  Report Type: Spontaneous
  Country: US (occurrence: US)
  Receive Date: 20150812
  Receipt Date: 20151211
  Transmission Date: 20160304
  Serious: No
  Sender: FDA-Public Use
  Company Number: GXBR2015US000787

PATIENT
  Sex: Female

DRUGS (2)
  1. ACLOVATE [Suspect]
     Active Substance: ALCLOMETASONE DIPROPIONATE
     Indication: ECZEMA
     Dosage: UNK DF, UNK
     Route: 061
  2. ALCLOMETASONE [Suspect]
     Active Substance: ALCLOMETASONE
     Indication: ECZEMA
     Dosage: UNK DF, UNK
     Route: 061

REACTIONS (2)
  - Expired product administered [Not Recovered/Not Resolved]
  - Drug ineffective [Unknown]
